FAERS Safety Report 12965917 (Version 3)
Quarter: 2016Q4

REPORT INFORMATION
  Report Type: Spontaneous
  Country: PK (occurrence: PK)
  Receive Date: 20161122
  Receipt Date: 20161205
  Transmission Date: 20170207
  Serious: Yes (Life-Threatening)
  Sender: FDA-Public Use
  Company Number: PK-SA-2016SA200389

PATIENT
  Age: 62 Year
  Sex: Female

DRUGS (5)
  1. LOPLATE [Concomitant]
     Indication: HYPERTENSION
     Route: 048
  2. NEODIPAR [Suspect]
     Active Substance: METFORMIN HYDROCHLORIDE
     Indication: HYPERGLYCAEMIA
     Dosage: START THERAPY: 6-7 YRS
     Route: 048
  3. INOSITA [Suspect]
     Active Substance: SITAGLIPTIN PHOSPHATE
     Indication: HYPERGLYCAEMIA
     Dosage: START THERAPY: 5-7 YRS
     Route: 048
  4. SOLOSTAR [Concomitant]
     Active Substance: DEVICE
  5. LANTUS SOLOSTAR [Suspect]
     Active Substance: INSULIN GLARGINE
     Indication: HYPERGLYCAEMIA
     Dosage: START: 2-3 YRS DOSE:30 UNIT(S)
     Route: 058

REACTIONS (3)
  - Breast mass [Recovered/Resolved]
  - Arthralgia [Not Recovered/Not Resolved]
  - Injection site haemorrhage [Not Recovered/Not Resolved]
